FAERS Safety Report 16360463 (Version 1)
Quarter: 2019Q2

REPORT INFORMATION
  Report Type: Report from Study
  Country: CO (occurrence: CO)
  Receive Date: 20190528
  Receipt Date: 20190528
  Transmission Date: 20190711
  Serious: Yes (Other)
  Sender: FDA-Public Use
  Company Number: CO-ACTELION-A-CH2019-185628

PATIENT
  Age: 42 Year
  Sex: Female
  Weight: 89 kg

DRUGS (4)
  1. OPSUMIT [Suspect]
     Active Substance: MACITENTAN
     Dosage: 10 MG, QD
     Route: 048
     Dates: start: 20180504, end: 20180719
  2. OPSUMIT [Suspect]
     Active Substance: MACITENTAN
     Indication: PULMONARY ARTERIAL HYPERTENSION
     Dosage: 10 MG, QD
     Route: 048
     Dates: start: 20180730, end: 20181211
  3. OXYGEN. [Concomitant]
     Active Substance: OXYGEN
     Dosage: 3 L, PER MIN
  4. OPSUMIT [Suspect]
     Active Substance: MACITENTAN
     Dosage: 10 MG, QD
     Route: 048
     Dates: start: 20190301, end: 20190428

REACTIONS (8)
  - Chest pain [Not Recovered/Not Resolved]
  - Fatigue [Not Recovered/Not Resolved]
  - Gait disturbance [Not Recovered/Not Resolved]
  - Venipuncture [Not Recovered/Not Resolved]
  - Wound [Not Recovered/Not Resolved]
  - Product supply issue [Unknown]
  - Rectal haemorrhage [Not Recovered/Not Resolved]
  - Limb operation [Not Recovered/Not Resolved]

NARRATIVE: CASE EVENT DATE: 201811
